FAERS Safety Report 7328136-6 (Version None)
Quarter: 2011Q1

REPORT INFORMATION
  Report Type: 
  Country: None (occurrence: None)
  Receive Date: 20110224
  Receipt Date: 20110224
  Transmission Date: 20110831
  Serious: Yes (Other)
  Sender: FDA-Public Use
  Company Number: None

PATIENT
  Age: 15 Year
  Sex: Female
  Weight: 60.782 kg

DRUGS (1)
  1. OCELLA BCP [Suspect]
     Dosage: 1 PILL DAILY
     Dates: start: 20101101, end: 20101130

REACTIONS (3)
  - ACNE [None]
  - NAUSEA [None]
  - PRODUCT SUBSTITUTION ISSUE [None]
